FAERS Safety Report 12254652 (Version 1)
Quarter: 2016Q2

REPORT INFORMATION
  Report Type: Spontaneous
  Country: US (occurrence: US)
  Receive Date: 20160411
  Receipt Date: 20160411
  Transmission Date: 20160815
  Serious: No
  Sender: FDA-Public Use
  Company Number: US-SA-2015SA096183

PATIENT
  Age: 52 Year
  Sex: Female

DRUGS (1)
  1. ALLEGRA D-12 HOUR [Suspect]
     Active Substance: FEXOFENADINE HYDROCHLORIDE\PSEUDOEPHEDRINE HYDROCHLORIDE
     Indication: MULTIPLE ALLERGIES
     Dosage: FREQUENCY: 2 DAYS ON 1DAY OFF.
     Route: 048
     Dates: start: 201505

REACTIONS (6)
  - Pyrexia [Unknown]
  - Malaise [Unknown]
  - Medication residue present [Unknown]
  - Heart rate increased [Unknown]
  - Blood glucose increased [Unknown]
  - Visual impairment [Unknown]
